FAERS Safety Report 18626018 (Version 1)
Quarter: 2020Q4

REPORT INFORMATION
  Report Type: Spontaneous
  Country: US (occurrence: US)
  Receive Date: 20201217
  Receipt Date: 20201217
  Transmission Date: 20210114
  Serious: No
  Sender: FDA-Public Use
  Company Number: US-AUROBINDO-AUR-APL-2019-074436

PATIENT
  Sex: Female

DRUGS (2)
  1. TRI-VYLIBRA LO [Suspect]
     Active Substance: ETHINYL ESTRADIOL\NORGESTIMATE
     Indication: PRODUCT USED FOR UNKNOWN INDICATION
     Dosage: UNK
     Route: 065
  2. TRI-VYLIBRA LO [Suspect]
     Active Substance: ETHINYL ESTRADIOL\NORGESTIMATE
     Dosage: 0.180 (UNSPECIFIED UNITS)
     Route: 065

REACTIONS (3)
  - Abdominal distension [Unknown]
  - Headache [Unknown]
  - Product substitution issue [Unknown]
